FAERS Safety Report 8638351 (Version 2)
Quarter: 2012Q4

REPORT INFORMATION
  Report Type: 
  Country: US (occurrence: US)
  Receive Date: 20120627
  Receipt Date: 20121122
  Transmission Date: 20130627
  Serious: Yes (Other)
  Sender: FDA-Public Use
  Company Number: US-ROCHE-1080741

PATIENT
  Sex: Female
  Weight: 74.91 kg

DRUGS (3)
  1. ACCUTANE [Suspect]
     Indication: ACNE
     Route: 065
     Dates: start: 198212
  2. ACCUTANE [Suspect]
     Route: 065
     Dates: start: 198301, end: 198308
  3. PREMARIN [Concomitant]

REACTIONS (8)
  - Crohn^s disease [Unknown]
  - Anxiety [Unknown]
  - Inflammatory bowel disease [Unknown]
  - Intestinal obstruction [Unknown]
  - Depression [Unknown]
  - Panic attack [Unknown]
  - Post-traumatic stress disorder [Unknown]
  - Irritable bowel syndrome [Unknown]
